FAERS Safety Report 7538319-8 (Version None)
Quarter: 2011Q2

REPORT INFORMATION
  Report Type: 
  Country: None (occurrence: None)
  Receive Date: 20110609
  Receipt Date: 20070312
  Transmission Date: 20111010
  Serious: Yes (Death, Other)
  Sender: FDA-Public Use
  Company Number: PHHO2007JP02156

PATIENT
  Sex: Male

DRUGS (12)
  1. ZOMETA [Suspect]
     Dosage: 4 MG, ONCE/SINGLE
     Dates: start: 20061005, end: 20061005
  2. FUTHAN [Concomitant]
     Indication: PNEUMONIA
  3. ZOMETA [Suspect]
     Dosage: 4 MG, ONCE/SINGLE
     Dates: start: 20061005, end: 20061005
  4. ZOMETA [Suspect]
     Indication: HYPERCALCAEMIA OF MALIGNANCY
     Dosage: 4 MG, ONCE/SINGLE
     Dates: start: 20060921, end: 20060921
  5. ZOMETA [Suspect]
     Dosage: 4 MG, ONCE/SINGLE
     Dates: start: 20060921, end: 20060921
  6. ZOMETA [Suspect]
     Dosage: 4 MG, ONCE/SINGLE
     Dates: start: 20061012, end: 20061012
  7. ZOMETA [Suspect]
     Dosage: 4 MG, ONCE/SINGLE
     Dates: start: 20060929, end: 20060929
  8. ZOMETA [Suspect]
     Dosage: 4 MG, ONCE/SINGLE
     Dates: start: 20060929, end: 20060929
  9. ZOMETA [Suspect]
     Dosage: 4 MG, ONCE/SINGLE
     Dates: start: 20061012, end: 20061012
  10. LASIX [Concomitant]
  11. MINOCYCLINE HCL [Concomitant]
  12. ELCITONIN [Concomitant]
     Indication: DISSEMINATED INTRAVASCULAR COAGULATION
     Dates: end: 20061002

REACTIONS (3)
  - DISSEMINATED INTRAVASCULAR COAGULATION [None]
  - PNEUMONIA [None]
  - NEOPLASM MALIGNANT [None]
